FAERS Safety Report 4854878-8 (Version None)
Quarter: 2005Q4

REPORT INFORMATION
  Report Type: 
  Country: None (occurrence: None)
  Receive Date: 20051213
  Receipt Date: 20051208
  Transmission Date: 20060501
  Serious: Yes (Hospitalization)
  Sender: FDA-Public Use
  Company Number: A044-002-005872

PATIENT
  Age: 86 Year
  Sex: Male
  Weight: 70 kg

DRUGS (7)
  1. ARICEPT [Suspect]
     Indication: DEMENTIA ALZHEIMER'S TYPE
     Dosage: 10 MG, 1 IN 1 D, ORAL
     Route: 048
     Dates: start: 20010101, end: 20051009
  2. ARICEPT [Suspect]
     Indication: DEMENTIA ALZHEIMER'S TYPE
     Dosage: 10 MG, 1 IN 1 D, ORAL
     Route: 048
     Dates: start: 20050101
  3. THIOCOLCHICOSIDE (THIOCOLCHICOSIDE) [Concomitant]
     Indication: NECK PAIN
     Dosage: 24 MG, ORAL
     Route: 048
     Dates: start: 20051003, end: 20051005
  4. TORENTAL LP (PENTOXIFYLINE) [Concomitant]
  5. LEUPROLIDE ACETATE [Concomitant]
  6. ASPEGIC 1000 [Concomitant]
  7. DISCOTRINE (GLYCERL TRINITRATE) [Concomitant]

REACTIONS (9)
  - AGITATION [None]
  - BRADYCARDIA [None]
  - CHOLINERGIC SYNDROME [None]
  - DIARRHOEA [None]
  - DRUG INTERACTION [None]
  - HYPERHIDROSIS [None]
  - LOSS OF CONSCIOUSNESS [None]
  - MALAISE [None]
  - SALIVARY HYPERSECRETION [None]
